FAERS Safety Report 13678304 (Version 2)
Quarter: 2017Q3

REPORT INFORMATION
  Report Type: Spontaneous
  Country: US (occurrence: US)
  Receive Date: 20170622
  Receipt Date: 20170719
  Transmission Date: 20171127
  Serious: Yes (Hospitalization, Other)
  Sender: FDA-Public Use
  Company Number: US-VERTEX PHARMACEUTICALS-2017-003285

PATIENT
  Age: 41 Year
  Sex: Female

DRUGS (17)
  1. BENADRYL [Concomitant]
     Active Substance: DIPHENHYDRAMINE HYDROCHLORIDE
  2. KALYDECO [Suspect]
     Active Substance: IVACAFTOR
     Indication: CYSTIC FIBROSIS
     Dosage: UNK, BID
     Route: 048
     Dates: start: 20120702
  3. PROVERA [Concomitant]
     Active Substance: MEDROXYPROGESTERONE ACETATE
  4. VITAMIN C [Concomitant]
     Active Substance: ASCORBIC ACID
  5. PREVACID [Concomitant]
     Active Substance: LANSOPRAZOLE
  6. PANCREASE MT [Concomitant]
     Active Substance: PANCRELIPASE
  7. ADVAIR DISKUS [Concomitant]
     Active Substance: FLUTICASONE PROPIONATE\SALMETEROL XINAFOATE
  8. ALBUTEROL SULFATE. [Concomitant]
     Active Substance: ALBUTEROL SULFATE
  9. ZYRTEC [Concomitant]
     Active Substance: CETIRIZINE HYDROCHLORIDE
  10. XOLAIR [Concomitant]
     Active Substance: OMALIZUMAB
  11. VITAMIN D [Concomitant]
     Active Substance: CHOLECALCIFEROL
  12. IBUPROFEN. [Concomitant]
     Active Substance: IBUPROFEN
  13. VITAMIN E [Concomitant]
     Active Substance: .ALPHA.-TOCOPHEROL
  14. THEOPHYLLINE [Concomitant]
     Active Substance: THEOPHYLLINE ANHYDROUS
  15. AZITHROMYCIN ANHYDROUS. [Concomitant]
     Active Substance: AZITHROMYCIN ANHYDROUS
  16. CALCIUM CITRATE [Concomitant]
     Active Substance: CALCIUM CITRATE
  17. SINGULAIR [Concomitant]
     Active Substance: MONTELUKAST SODIUM

REACTIONS (3)
  - Monoparesis [Recovering/Resolving]
  - Speech rehabilitation [Recovering/Resolving]
  - Brain abscess [Recovering/Resolving]

NARRATIVE: CASE EVENT DATE: 201706
